FAERS Safety Report 4423363-X (Version None)
Quarter: 2004Q3

REPORT INFORMATION
  Report Type: 
  Country: None (occurrence: None)
  Receive Date: 20040809
  Receipt Date: 20040801
  Transmission Date: 20050211
  Serious: Yes (Disabling)
  Sender: FDA-Public Use
  Company Number: A-CH2004-07014

PATIENT
  Sex: Female
  Weight: 75 kg

DRUGS (3)
  1. TRACLEER [Suspect]
     Indication: PULMONARY HYPERTENSION
     Dosage: SEE IMAGE
     Route: 048
     Dates: start: 20040401, end: 20040501
  2. TRACLEER [Suspect]
     Indication: PULMONARY HYPERTENSION
     Dosage: SEE IMAGE
     Route: 048
     Dates: start: 20040501, end: 20040601
  3. FUROSEMIDE [Concomitant]

REACTIONS (3)
  - JAUNDICE [None]
  - PRURITUS [None]
  - VOMITING [None]
